FAERS Safety Report 7962946-7 (Version None)
Quarter: 2011Q4

REPORT INFORMATION
  Report Type: 
  Country: None (occurrence: None)
  Receive Date: 20111207
  Receipt Date: 20111130
  Transmission Date: 20120403
  Serious: Yes (Other)
  Sender: FDA-Public Use
  Company Number: KR-ELI_LILLY_AND_COMPANY-KR201112000681

PATIENT
  Age: 58 Year
  Sex: Female
  Weight: 92 kg

DRUGS (4)
  1. THYROID PREPARATIONS [Concomitant]
     Indication: HYPOTHYROIDISM
  2. BYETTA [Suspect]
     Indication: TYPE 2 DIABETES MELLITUS
     Dosage: 5 UG, BID
     Route: 058
     Dates: start: 20110615, end: 20110711
  3. BYETTA [Suspect]
     Dosage: 10 UG, BID
     Dates: start: 20110712
  4. DRUG USED IN DIABETES [Concomitant]
     Indication: TYPE 2 DIABETES MELLITUS

REACTIONS (2)
  - THYROID CYST [None]
  - FATIGUE [None]
